FAERS Safety Report 7996406-4 (Version None)
Quarter: 2011Q4

REPORT INFORMATION
  Report Type: 
  Country: None (occurrence: None)
  Receive Date: 20111220
  Receipt Date: 20111214
  Transmission Date: 20120403
  Serious: Yes (Other)
  Sender: FDA-Public Use
  Company Number: PHHY2011JP109986

PATIENT
  Age: 71 Year
  Sex: Male
  Weight: 73 kg

DRUGS (5)
  1. WARFARIN SODIUM [Interacting]
     Dosage: 3 MG, DAILY
  2. S-1 [Interacting]
     Dosage: 60 MG, BID
  3. WARFARIN SODIUM [Interacting]
     Dosage: 2.5 MG, DAILY
  4. WARFARIN SODIUM [Interacting]
     Dosage: 3.5 MG, PER DAY
  5. WARFARIN SODIUM [Suspect]
     Dosage: 3 MG, PER DAY

REACTIONS (2)
  - DRUG INTERACTION [None]
  - INTERNATIONAL NORMALISED RATIO INCREASED [None]
